FAERS Safety Report 12262986 (Version 1)
Quarter: 2016Q2

REPORT INFORMATION
  Report Type: Spontaneous
  Country: US (occurrence: US)
  Receive Date: 20160413
  Receipt Date: 20160413
  Transmission Date: 20160815
  Serious: No
  Sender: FDA-Public Use
  Company Number: US-PFIZER INC-2016162423

PATIENT
  Age: 66 Year
  Sex: Female
  Weight: 85.73 kg

DRUGS (9)
  1. ADVIL PM [Suspect]
     Active Substance: DIPHENHYDRAMINE CITRATE\IBUPROFEN
     Dosage: 1/2 A PILL PER NIGHT
  2. DIGOXIN. [Concomitant]
     Active Substance: DIGOXIN
     Indication: ATRIAL FIBRILLATION
     Dosage: 25 MG, DAILY
     Dates: start: 2001
  3. ADVIL PM [Suspect]
     Active Substance: DIPHENHYDRAMINE CITRATE\IBUPROFEN
     Indication: SLEEP DISORDER
     Dosage: 200MG CAPLETS, 2 EVERY NIGHT
     Dates: start: 201510
  4. ASPIRIN. [Concomitant]
     Active Substance: ASPIRIN
     Indication: ATRIAL FIBRILLATION
     Dosage: 325 MG, DAILY
     Dates: start: 2001
  5. LISINOPRIL. [Concomitant]
     Active Substance: LISINOPRIL
     Indication: HYPERTENSION
     Dosage: 20 MG, 1X/DAY
     Dates: start: 2001
  6. ADVAIR HFA [Concomitant]
     Active Substance: FLUTICASONE PROPIONATE\SALMETEROL XINAFOATE
     Indication: RESPIRATORY DISORDER
     Dosage: [FLUTICASONE PROPIONATE 100 MCG] / [SALMETEROL XINAFOATE 50 MCG], AS NEEDED
  7. PRAVASTATIN [Concomitant]
     Active Substance: PRAVASTATIN\PRAVASTATIN SODIUM
     Indication: BLOOD CHOLESTEROL ABNORMAL
     Dosage: 40 MG, DAILY
     Dates: start: 2013
  8. SYNTHROID [Concomitant]
     Active Substance: LEVOTHYROXINE SODIUM
     Indication: HYPOTHYROIDISM
     Dosage: 88 UG, DAILY
  9. MIACALCIN [Concomitant]
     Active Substance: CALCITONIN SALMON
     Indication: OSTEOPOROSIS
     Dosage: 1 SPRAY DAILY IN NOSTRIL
     Route: 045
     Dates: start: 2007

REACTIONS (6)
  - Rebound effect [Unknown]
  - Burning sensation [Unknown]
  - Pruritus [Unknown]
  - Intentional product misuse [Unknown]
  - Rash [Not Recovered/Not Resolved]
  - Impetigo [Unknown]

NARRATIVE: CASE EVENT DATE: 201511
